FAERS Safety Report 17400837 (Version 1)
Quarter: 2020Q1

REPORT INFORMATION
  Report Type: Spontaneous
  Country: US (occurrence: US)
  Receive Date: 20200127
  Receipt Date: 20200127
  Transmission Date: 20200409
  Serious: No
  Sender: FDA-Public Use
  Company Number: None

PATIENT
  Age: 31 Year
  Sex: Female

DRUGS (1)
  1. GILENYA [Suspect]
     Active Substance: FINGOLIMOD HYDROCHLORIDE
     Indication: MULTIPLE SCLEROSIS
     Route: 048
     Dates: start: 201802, end: 201912

REACTIONS (4)
  - Vertebral lesion [None]
  - Therapy cessation [None]
  - Intervertebral disc disorder [None]
  - Central nervous system lesion [None]

NARRATIVE: CASE EVENT DATE: 201911
